FAERS Safety Report 5697121-2 (Version None)
Quarter: 2008Q2

REPORT INFORMATION
  Report Type: 
  Country: None (occurrence: None)
  Receive Date: 20080408
  Receipt Date: 20080328
  Transmission Date: 20081010
  Serious: Yes (Hospitalization)
  Sender: FDA-Public Use
  Company Number: AT-ELI_LILLY_AND_COMPANY-AT200803001025

PATIENT
  Sex: Male
  Weight: 90 kg

DRUGS (13)
  1. GEMZAR [Suspect]
     Indication: NEOPLASM MALIGNANT
     Dosage: 2160 MG, DAILY (1/D)
     Route: 042
     Dates: start: 20080221, end: 20080228
  2. DIAMICRON [Concomitant]
     Indication: DIABETES MELLITUS
     Dosage: 160 MG, EACH MORNING
     Route: 048
  3. DIAMICRON [Concomitant]
     Dosage: 80 MG, EACH EVENING
     Route: 048
  4. GLUCOPHAGE [Concomitant]
     Indication: DIABETES MELLITUS
     Dosage: 1000 MG, 2/D
     Route: 048
  5. BLOPRESS PLUS [Concomitant]
     Indication: HYPERTENSION
     Dosage: 16 MG, EACH MORNING
     Route: 048
  6. BLOPRESS [Concomitant]
     Indication: HYPERTENSION
     Dosage: 8 MG, EACH EVENING
     Route: 048
  7. KYTRIL [Concomitant]
     Indication: PROPHYLAXIS OF NAUSEA AND VOMITING
     Dosage: 2 MG, EACH MORNING
     Route: 048
  8. PERFALGAN [Concomitant]
     Dosage: 1 G, DAILY (1/D)
     Route: 042
  9. THROMBO ASS [Concomitant]
     Indication: CEREBROVASCULAR ACCIDENT
     Dosage: 100 MG, 2/D
     Route: 048
  10. DOXIUM [Concomitant]
     Indication: HYPERTENSION
     Dosage: 500 MG, 2/D
     Route: 048
  11. COSOPT [Concomitant]
  12. XALATAN [Concomitant]
  13. THYREX [Concomitant]
     Dosage: 0.2 MG, EACH MORNING
     Route: 048

REACTIONS (5)
  - ANAEMIA [None]
  - INFLAMMATION [None]
  - PYREXIA [None]
  - RASH [None]
  - URINARY RETENTION [None]
